FAERS Safety Report 9619666 (Version 1)
Quarter: 2013Q4

REPORT INFORMATION
  Report Type: Spontaneous
  Country: BR (occurrence: BR)
  Receive Date: 20131014
  Receipt Date: 20131014
  Transmission Date: 20140711
  Serious: Yes (Hospitalization)
  Sender: FDA-Public Use
  Company Number: BR-PFIZER INC-2013290251

PATIENT
  Age: 66 Year
  Sex: Female
  Weight: 78 kg

DRUGS (1)
  1. FRONTAL XR [Suspect]
     Dosage: 0.5 MG, UNK
     Route: 048

REACTIONS (2)
  - Pain [Unknown]
  - Limb discomfort [Unknown]
